FAERS Safety Report 9479597 (Version 2)
Quarter: 2013Q3

REPORT INFORMATION
  Report Type: Report from Study
  Country: BR (occurrence: BR)
  Receive Date: 20130827
  Receipt Date: 20130827
  Transmission Date: 20140515
  Serious: Yes (Other)
  Sender: FDA-Public Use
  Company Number: PHHY2013BR064568

PATIENT
  Sex: Female
  Weight: 40 kg

DRUGS (10)
  1. EXJADE [Suspect]
     Indication: SICKLE CELL ANAEMIA
     Dosage: 1125 MG, (2 DF 500 MG/1 DF 125 MG)
     Dates: start: 2011
  2. EXJADE [Suspect]
     Dosage: 1000 MG, (2DF OF 500 MG)
     Dates: end: 201212
  3. EXJADE [Suspect]
     Dosage: 625 MG, (1DF 500 MG/ 1 DF 125 MG)
     Dates: start: 201305
  4. EXJADE [Suspect]
     Dosage: 500 MG, (1 DF)
  5. EXJADE [Suspect]
     Dosage: 625 MG, (1DF 500 MG/ 1 DF 125 MG)
  6. EXJADE [Suspect]
     Dosage: 1000 MG, (2 DF 500 MG)
  7. EXJADE [Suspect]
     Dosage: 1 DF (125 MG), UNK
     Dates: start: 201305
  8. EXJADE [Suspect]
     Dosage: 1 DF (500 MG),DAILY (FASTING)
     Route: 048
  9. EXJADE [Suspect]
     Dosage: 2 DF (125 MG), DAILY (FASTING)
     Route: 048
  10. HYDROXYUREA [Concomitant]
     Dosage: UNK UKN, UNK

REACTIONS (12)
  - Limb injury [Unknown]
  - Malaise [Unknown]
  - Feeling abnormal [Unknown]
  - Poor peripheral circulation [Unknown]
  - Eating disorder [Unknown]
  - Decreased appetite [Recovered/Resolved]
  - Pain in extremity [Unknown]
  - Anaemia [Unknown]
  - Vomiting [Recovered/Resolved]
  - Abdominal pain upper [Recovered/Resolved]
  - Nausea [Recovered/Resolved]
  - Diarrhoea [Unknown]
